FAERS Safety Report 23853599 (Version 1)
Quarter: 2024Q2

REPORT INFORMATION
  Report Type: Spontaneous
  Country: US (occurrence: US)
  Receive Date: 20240514
  Receipt Date: 20240514
  Transmission Date: 20240716
  Serious: Yes (Other)
  Sender: FDA-Public Use
  Company Number: US-SANOFI-02036274

PATIENT
  Age: 61 Year
  Sex: Female

DRUGS (2)
  1. AUBAGIO [Suspect]
     Active Substance: TERIFLUNOMIDE
     Indication: Multiple sclerosis
     Dosage: 14 MG, QD
     Dates: start: 2020
  2. AUBAGIO [Suspect]
     Active Substance: TERIFLUNOMIDE
     Dosage: 7 MG, QD
     Dates: start: 202302, end: 202305

REACTIONS (17)
  - Hepatic cirrhosis [Unknown]
  - Hypothalamo-pituitary disorder [Unknown]
  - Brain fog [Unknown]
  - Sensory loss [Unknown]
  - Ovarian atrophy [Unknown]
  - Premature menopause [Unknown]
  - Hot flush [Unknown]
  - Flushing [Unknown]
  - Night sweats [Unknown]
  - Heart rate increased [Unknown]
  - Palpitations [Unknown]
  - Disease progression [Unknown]
  - Gait disturbance [Unknown]
  - Movement disorder [Unknown]
  - Drug interaction [Unknown]
  - Pain [Unknown]
  - Paraesthesia [Unknown]

NARRATIVE: CASE EVENT DATE: 20230301
